FAERS Safety Report 5193113-0 (Version None)
Quarter: 2006Q4

REPORT INFORMATION
  Report Type: 
  Country: None (occurrence: None)
  Receive Date: 20061228
  Receipt Date: 20060504
  Transmission Date: 20070319
  Serious: No
  Sender: FDA-Public Use
  Company Number: US-GLAXOSMITHKLINE-A0604416A

PATIENT
  Age: 49 Year
  Sex: Male

DRUGS (4)
  1. AVODART [Suspect]
     Indication: BENIGN PROSTATIC HYPERPLASIA
     Dosage: .5MG PER DAY
     Route: 048
     Dates: start: 20060504
  2. CIPROFLOXACIN [Concomitant]
  3. ZOCOR [Concomitant]
  4. CLARINEX [Concomitant]

REACTIONS (1)
  - DRUG ADMINISTRATION ERROR [None]
